FAERS Safety Report 10268433 (Version 1)
Quarter: 2014Q2

REPORT INFORMATION
  Report Type: Other
  Country: JP (occurrence: JP)
  Receive Date: 20140630
  Receipt Date: 20140630
  Transmission Date: 20141212
  Serious: Yes (Life-Threatening)
  Sender: FDA-Public Use
  Company Number: JP-BRISTOL-MYERS SQUIBB COMPANY-21116413

PATIENT
  Age: 78 Year
  Sex: Female

DRUGS (7)
  1. WARFARIN SODIUM [Suspect]
     Indication: ATRIAL FIBRILLATION
  2. ATORVASTATIN [Concomitant]
  3. AMLODIPINE [Concomitant]
  4. OLMESARTAN MEDOXOMIL [Concomitant]
  5. NIFEDIPINE [Concomitant]
  6. NICORANDIL [Concomitant]
  7. ASPIRIN [Concomitant]
     Dosage: 1DF = 100MG/DL

REACTIONS (2)
  - Coagulopathy [Recovered/Resolved]
  - Vitamin K deficiency [Recovered/Resolved]
